FAERS Safety Report 17765318 (Version 3)
Quarter: 2020Q2

REPORT INFORMATION
  Report Type: Spontaneous
  Country: US (occurrence: US)
  Receive Date: 20200511
  Receipt Date: 20200512
  Transmission Date: 20200714
  Serious: No
  Sender: FDA-Public Use
  Company Number: US-PFIZER INC-2020186827

PATIENT
  Age: 59 Year
  Sex: Female
  Weight: 85.73 kg

DRUGS (2)
  1. DETROL LA [Suspect]
     Active Substance: TOLTERODINE TARTRATE
     Dosage: UNK UNK, ALTERNATE DAY
     Route: 048
  2. DETROL LA [Suspect]
     Active Substance: TOLTERODINE TARTRATE
     Indication: URINARY INCONTINENCE
     Dosage: UNK UNK, 1X/DAY
     Route: 048

REACTIONS (3)
  - Overweight [Unknown]
  - Product dose omission [Unknown]
  - Intentional product misuse [Unknown]
